FAERS Safety Report 7273641-4 (Version None)
Quarter: 2010Q4

REPORT INFORMATION
  Report Type: 
  Country: None (occurrence: None)
  Receive Date: 20101130
  Receipt Date: 20091029
  Transmission Date: 20110411
  Serious: Yes (Hospitalization)
  Sender: FDA-Public Use
  Company Number: 2009SP033460

PATIENT
  Age: 17 Year
  Sex: Female
  Weight: 37.9207 kg

DRUGS (1)
  1. NUVARING [Suspect]
     Indication: CONTRACEPTION
     Dosage: VAG
     Route: 067
     Dates: start: 20070701, end: 20071001

REACTIONS (2)
  - DEEP VEIN THROMBOSIS [None]
  - PLATELET COUNT DECREASED [None]
